FAERS Safety Report 15288290 (Version 1)
Quarter: 2018Q3

REPORT INFORMATION
  Report Type: Spontaneous
  Country: US (occurrence: US)
  Receive Date: 20180802
  Receipt Date: 20180802
  Transmission Date: 20181010
  Serious: Yes (Other)
  Sender: FDA-Public Use
  Company Number: None

PATIENT
  Age: 24 Year
  Sex: Female
  Weight: 64.35 kg

DRUGS (2)
  1. RHOPHYLAC [Suspect]
     Active Substance: HUMAN RHO(D) IMMUNE GLOBULIN
     Indication: BLOOD GROUP A
     Dosage: ?          QUANTITY:1 INJECTION(S);OTHER FREQUENCY:1;OTHER ROUTE:IM INJECTION?
  2. SMARTY PANTS VITAMINS AND IRON [Concomitant]

REACTIONS (16)
  - Pain [None]
  - Dyspnoea [None]
  - Muscle spasticity [None]
  - Impaired driving ability [None]
  - Dizziness [None]
  - Hypoaesthesia [None]
  - Chills [None]
  - Insomnia [None]
  - Disturbance in attention [None]
  - Urticaria [None]
  - Loss of personal independence in daily activities [None]
  - Cough [None]
  - Paraesthesia [None]
  - Feeling cold [None]
  - Fall [None]
  - Arthralgia [None]

NARRATIVE: CASE EVENT DATE: 20180702
